FAERS Safety Report 9203087 (Version 1)
Quarter: 2013Q1

REPORT INFORMATION
  Report Type: Spontaneous
  Country: NL (occurrence: None)
  Receive Date: 20130328
  Receipt Date: 20130328
  Transmission Date: 20140127
  Serious: Yes (Life-Threatening, Hospitalization)
  Sender: FDA-Public Use
  Company Number: 2013/073

PATIENT
  Age: 53 Year
  Sex: Female

DRUGS (2)
  1. VENLAFAXINE [Suspect]
     Indication: DEPRESSION
  2. AMITRIPTYLINE (NO PREF. NAME) [Suspect]

REACTIONS (10)
  - Depressed level of consciousness [None]
  - Laceration [None]
  - Respiratory rate decreased [None]
  - Oxygen saturation decreased [None]
  - Blood pressure decreased [None]
  - Blood glucose increased [None]
  - Respiratory acidosis [None]
  - Haemodynamic instability [None]
  - Toxicity to various agents [None]
  - Heart rate decreased [None]
